FAERS Safety Report 11386588 (Version 1)
Quarter: 2015Q3

REPORT INFORMATION
  Report Type: Spontaneous
  Country: US (occurrence: None)
  Receive Date: 20150814
  Receipt Date: 20150814
  Transmission Date: 20151125
  Serious: Yes (Death)
  Sender: FDA-Public Use
  Company Number: None

PATIENT
  Age: 56 Year
  Sex: Female

DRUGS (1)
  1. BOTOX [Suspect]
     Active Substance: ONABOTULINUMTOXINA
     Indication: MUSCLE SPASMS
     Dosage: 100U   ADMIN BY MD  INTRAMUSCULAR?02/17/2015 - DEATH
     Route: 030
     Dates: start: 20150217

REACTIONS (1)
  - Death [None]

NARRATIVE: CASE EVENT DATE: 20150813
